FAERS Safety Report 6384038-3 (Version None)
Quarter: 2009Q4

REPORT INFORMATION
  Report Type: 
  Country: None (occurrence: None)
  Receive Date: 20091001
  Receipt Date: 20090925
  Transmission Date: 20100525
  Serious: Yes (Other)
  Sender: FDA-Public Use
  Company Number: FR-JNJFOC-20090907386

PATIENT
  Sex: Male

DRUGS (6)
  1. HALDOL [Suspect]
     Indication: DRUG USE FOR UNKNOWN INDICATION
     Route: 065
  2. ADANCOR [Concomitant]
     Route: 065
  3. ALDACTONE [Concomitant]
     Route: 065
  4. CARDENSIEL [Concomitant]
     Route: 065
  5. SOLUPRED [Concomitant]
     Route: 065
  6. OXYCODONE [Concomitant]
     Route: 065

REACTIONS (3)
  - ALTERED STATE OF CONSCIOUSNESS [None]
  - HYPOTHERMIA [None]
  - SOMNOLENCE [None]
